FAERS Safety Report 6613238-X (Version None)
Quarter: 2010Q1

REPORT INFORMATION
  Report Type: 
  Country: None (occurrence: None)
  Receive Date: 20100304
  Receipt Date: 20100301
  Transmission Date: 20100710
  Serious: Yes (Other)
  Sender: FDA-Public Use
  Company Number: BR-ROXANE LABORATORIES, INC.-2010-RO-00213RO

PATIENT
  Age: 32 Year
  Sex: Female

DRUGS (11)
  1. TOPIRAMATE [Suspect]
     Indication: MIGRAINE
  2. AZOPT [Suspect]
     Indication: EYE PAIN
     Route: 031
  3. AZOPT [Suspect]
     Indication: VISUAL ACUITY REDUCED
  4. DIPYRONE [Suspect]
     Indication: EYE PAIN
     Route: 048
  5. DIPYRONE [Suspect]
     Indication: VISUAL ACUITY REDUCED
  6. RIVOTRIL [Suspect]
     Indication: DEPRESSION
  7. RIVOTRIL [Suspect]
     Indication: INSOMNIA
  8. DIAMOX SRC [Suspect]
     Indication: ANGLE CLOSURE GLAUCOMA
     Route: 048
  9. PILOCARPINE HYDROCHLORIDE [Suspect]
     Indication: ANGLE CLOSURE GLAUCOMA
     Route: 031
  10. TIMOLOL MALEATE [Suspect]
     Indication: ANGLE CLOSURE GLAUCOMA
     Route: 031
  11. COMBIGAN [Suspect]

REACTIONS (6)
  - ANGLE CLOSURE GLAUCOMA [None]
  - DRY EYE [None]
  - HEADACHE [None]
  - MYOPIA [None]
  - VITREOUS DETACHMENT [None]
  - VITREOUS FLOATERS [None]
